FAERS Safety Report 6466375-7 (Version None)
Quarter: 2009Q4

REPORT INFORMATION
  Report Type: 
  Country: None (occurrence: None)
  Receive Date: 20091127
  Receipt Date: 20091124
  Transmission Date: 20100525
  Serious: Yes (Hospitalization, Disabling)
  Sender: FDA-Public Use
  Company Number: SP02611

PATIENT
  Age: 67 Year
  Sex: Female
  Weight: 53.5244 kg

DRUGS (11)
  1. OSMOPREP [Suspect]
     Indication: COLONOSCOPY
     Dosage: SPLIT DOSE REGIMEN, ORAL
     Route: 048
     Dates: start: 20091011, end: 20091011
  2. OXYGEN [Concomitant]
  3. PULMICORT [Concomitant]
  4. BENICAR [Concomitant]
  5. PREVACID [Concomitant]
  6. LIPITOR [Concomitant]
  7. PREPARATION H [Concomitant]
  8. PAROXETINE [Concomitant]
  9. ASPIRIN [Concomitant]
  10. BONIVA [Concomitant]
  11. METHIMAZOLE [Concomitant]

REACTIONS (20)
  - ABDOMINAL DISTENSION [None]
  - ANAEMIA [None]
  - BACK PAIN [None]
  - DEHYDRATION [None]
  - FATIGUE [None]
  - FEELING HOT [None]
  - FLANK PAIN [None]
  - FOREIGN BODY [None]
  - HAEMORRHOIDAL HAEMORRHAGE [None]
  - HEADACHE [None]
  - INCORRECT DOSE ADMINISTERED [None]
  - MALAISE [None]
  - NEPHROCALCINOSIS [None]
  - NEPHROPATHY [None]
  - OROPHARYNGEAL PAIN [None]
  - PAIN [None]
  - PROCEDURAL PAIN [None]
  - PYREXIA [None]
  - RENAL FAILURE ACUTE [None]
  - RENAL TUBULAR NECROSIS [None]
